FAERS Safety Report 16944108 (Version 2)
Quarter: 2019Q4

REPORT INFORMATION
  Report Type: Other
  Country: SA (occurrence: SA)
  Receive Date: 20191022
  Receipt Date: 20191024
  Transmission Date: 20200122
  Serious: Yes (Hospitalization, Other)
  Sender: FDA-Public Use
  Company Number: SA-DEXPHARM-20190900

PATIENT
  Age: 41 Year
  Sex: Male

DRUGS (30)
  1. LEVETIRACETAM IV [Suspect]
     Active Substance: LEVETIRACETAM
     Route: 041
  2. VALPORIC ACID [Suspect]
     Active Substance: VALPROIC ACID
  3. THIOPENTAL SODIUM. [Suspect]
     Active Substance: THIOPENTAL SODIUM
     Route: 041
  4. PHENOBARBITAL. [Suspect]
     Active Substance: PHENOBARBITAL
  5. PREDNISOLONE. [Suspect]
     Active Substance: PREDNISOLONE
  6. LEVETIRACETAM IV [Suspect]
     Active Substance: LEVETIRACETAM
     Indication: SEIZURE
     Dosage: 2 MG TWICE DAILY
     Route: 041
  7. KETAMINE [Suspect]
     Active Substance: KETAMINE
  8. KETAMINE [Suspect]
     Active Substance: KETAMINE
     Route: 041
  9. TEGRETOL [Suspect]
     Active Substance: CARBAMAZEPINE
  10. PHENYTOIN. [Suspect]
     Active Substance: PHENYTOIN
     Route: 041
  11. LEVETIRACETAM IV [Suspect]
     Active Substance: LEVETIRACETAM
  12. LEVETIRACETAM. [Suspect]
     Active Substance: LEVETIRACETAM
  13. MIDAZOLAM [Suspect]
     Active Substance: MIDAZOLAM HYDROCHLORIDE
     Indication: SEIZURE
     Route: 040
  14. FENTANYL. [Suspect]
     Active Substance: FENTANYL
     Indication: SEIZURE
  15. RANITIDINE. [Suspect]
     Active Substance: RANITIDINE
  16. MIDAZOLAM [Suspect]
     Active Substance: MIDAZOLAM HYDROCHLORIDE
     Indication: SEIZURE
     Route: 041
  17. LAMICTAL [Suspect]
     Active Substance: LAMOTRIGINE
     Indication: SEIZURE
  18. PROPOFOL. [Suspect]
     Active Substance: PROPOFOL
     Indication: SEIZURE
  19. PHENYTOIN. [Suspect]
     Active Substance: PHENYTOIN
  20. FENTANYL. [Suspect]
     Active Substance: FENTANYL
     Indication: SEIZURE
     Route: 041
  21. PHENOBARBITAL. [Suspect]
     Active Substance: PHENOBARBITAL
     Indication: SEIZURE
     Dosage: 110MG TWICE DAILY
     Route: 041
  22. PHENOBARBITAL. [Suspect]
     Active Substance: PHENOBARBITAL
  23. IMMUNOGLOBULIN NOS [Suspect]
     Active Substance: IMMUNE GLOBULIN NOS
     Indication: SEIZURE
     Dosage: 0.4 G/KG FOR 5 DAYS
     Route: 041
  24. RITUXIMAB. [Suspect]
     Active Substance: RITUXIMAB
     Indication: SEIZURE
     Dosage: 1 GRAMS ONCE 2 DOSES GIVEN WITHING 2 WEEK INTERVAL
  25. LAMOTRIGINE. [Suspect]
     Active Substance: LAMOTRIGINE
     Indication: SEIZURE
     Dosage: 200MG NASOGASTRIC TWICE DAILY
     Route: 045
  26. THIOPENTAL SODIUM. [Suspect]
     Active Substance: THIOPENTAL SODIUM
  27. HEPARIN [Suspect]
     Active Substance: HEPARIN SODIUM
  28. VALPORIC ACID [Suspect]
     Active Substance: VALPROIC ACID
     Route: 041
  29. PHENOBARBITAL. [Suspect]
     Active Substance: PHENOBARBITAL
     Route: 041
  30. WARFARIN [Suspect]
     Active Substance: WARFARIN

REACTIONS (3)
  - Antiphospholipid syndrome [Unknown]
  - Schizophrenia [Unknown]
  - Drug ineffective [Recovered/Resolved]
